FAERS Safety Report 23951165 (Version 1)
Quarter: 2024Q2

REPORT INFORMATION
  Report Type: Report from Study
  Country: US (occurrence: US)
  Receive Date: 20240607
  Receipt Date: 20240607
  Transmission Date: 20240716
  Serious: No
  Sender: FDA-Public Use
  Company Number: US-SPRINGWORKS THERAPEUTICS-SW-001671

PATIENT
  Sex: Female

DRUGS (2)
  1. NIROGACESTAT [Suspect]
     Active Substance: NIROGACESTAT
     Indication: Product used for unknown indication
     Dosage: 150  MILLIGRAM, BID
     Route: 048
     Dates: start: 20240517
  2. NIROGACESTAT [Suspect]
     Active Substance: NIROGACESTAT
     Dosage: 150 MILLIGRAM, QD

REACTIONS (5)
  - Vomiting [Recovering/Resolving]
  - Malaise [Recovering/Resolving]
  - Nausea [Recovering/Resolving]
  - Diarrhoea [Recovering/Resolving]
  - Intentional underdose [Recovering/Resolving]
